FAERS Safety Report 15498961 (Version 1)
Quarter: 2018Q4

REPORT INFORMATION
  Report Type: Spontaneous
  Country: US (occurrence: US)
  Receive Date: 20181005
  Receipt Date: 20181005
  Transmission Date: 20190205
  Serious: Yes (Life-Threatening, Hospitalization)
  Sender: FDA-Public Use
  Company Number: None

PATIENT
  Age: 75 Year
  Sex: Female
  Weight: 52.65 kg

DRUGS (15)
  1. DILTIAZEM. [Concomitant]
     Active Substance: DILTIAZEM
  2. VITAMIN B12 [Concomitant]
     Active Substance: CYANOCOBALAMIN
  3. MAGNESIUM [Concomitant]
     Active Substance: MAGNESIUM
  4. LEVOTHYROXINE. [Concomitant]
     Active Substance: LEVOTHYROXINE
  5. LEUFLOIMIDE [Concomitant]
  6. PREDNISONE. [Concomitant]
     Active Substance: PREDNISONE
  7. VITAMIN D [Concomitant]
     Active Substance: CHOLECALCIFEROL
  8. CHLORTHALIDONE. [Concomitant]
     Active Substance: CHLORTHALIDONE
  9. OMEGA 3 [Concomitant]
     Active Substance: OMEGA-3 FATTY ACIDS
  10. SIMPONI ARIA [Suspect]
     Active Substance: GOLIMUMAB
     Indication: RHEUMATOID ARTHRITIS
     Dosage: ?          QUANTITY:1 INFUSION;?
     Dates: start: 20180817, end: 20180817
  11. VITAMIN B COMPLEX [Concomitant]
     Active Substance: CYANOCOBALAMIN\DEXPANTHENOL\NIACINAMIDE\PYRIDOXINE HYDROCHLORIDE\RIBOFLAVIN 5^-PHOSPHATE SODIUM\THIAMINE HYDROCHLORIDE\VITAMIN B COMPLEX
  12. PROLIX [Concomitant]
  13. FOLIC ACID. [Concomitant]
     Active Substance: FOLIC ACID
  14. VITAMIN C [Concomitant]
     Active Substance: ASCORBIC ACID
  15. VITAMIN E [Concomitant]
     Active Substance: .ALPHA.-TOCOPHEROL

REACTIONS (4)
  - Chills [None]
  - Dizziness [None]
  - Septic shock [None]
  - Cellulitis [None]

NARRATIVE: CASE EVENT DATE: 20180822
